FAERS Safety Report 8911907 (Version 1)
Quarter: 2012Q4

REPORT INFORMATION
  Report Type: 
  Country: US (occurrence: US)
  Receive Date: 20121115
  Receipt Date: 20121115
  Transmission Date: 20130627
  Serious: No
  Sender: FDA-Public Use
  Company Number: US-PFIZER INC-2012281725

PATIENT
  Age: 58 Year

DRUGS (1)
  1. VIAGRA [Suspect]
     Dosage: 100 mg, as needed (1 tablet(s))

REACTIONS (2)
  - Lipids increased [Unknown]
  - Hypertension [Unknown]
